FAERS Safety Report 5359289-7 (Version None)
Quarter: 2007Q2

REPORT INFORMATION
  Report Type: 
  Country: None (occurrence: None)
  Receive Date: 20070530
  Receipt Date: 20070315
  Transmission Date: 20071010
  Serious: No
  Sender: FDA-Public Use
  Company Number: 2007PV031772

PATIENT
  Age: 55 Year
  Sex: Female
  Weight: 92.9874 kg

DRUGS (14)
  1. BYETTA [Suspect]
     Indication: DIABETES MELLITUS NON-INSULIN-DEPENDENT
     Dosage: SEE IMAGE
     Route: 058
     Dates: start: 20060801, end: 20060901
  2. BYETTA [Suspect]
     Indication: DIABETES MELLITUS NON-INSULIN-DEPENDENT
     Dosage: SEE IMAGE
     Route: 058
     Dates: start: 20060901, end: 20070301
  3. BYETTA [Suspect]
     Indication: DIABETES MELLITUS NON-INSULIN-DEPENDENT
     Dosage: SEE IMAGE
     Route: 058
     Dates: start: 20070312
  4. CALCIUM ADN VITAMIN D [Concomitant]
  5. DIOVAN [Concomitant]
  6. LOTREL [Concomitant]
  7. SKELAXIN [Concomitant]
  8. SINGULAIR ^MERCK FROSTT^ [Concomitant]
  9. NASONEX [Concomitant]
  10. ABUTEROL [Concomitant]
  11. LIPITOR [Concomitant]
  12. OMEPRAZOLE [Concomitant]
  13. METFORMIN HCL [Concomitant]
  14. ANTI-DIABETICS [Concomitant]

REACTIONS (6)
  - CHILLS [None]
  - DIARRHOEA [None]
  - DYSPEPSIA [None]
  - HYPERCHLORHYDRIA [None]
  - HYPERHIDROSIS [None]
  - WEIGHT DECREASED [None]
